FAERS Safety Report 7067691-0 (Version None)
Quarter: 2010Q4

REPORT INFORMATION
  Report Type: 
  Country: None (occurrence: None)
  Receive Date: 20101028
  Receipt Date: 20101015
  Transmission Date: 20110411
  Serious: Yes (Other)
  Sender: FDA-Public Use
  Company Number: PHHY2010FR69878

PATIENT
  Age: 7 Year
  Sex: Female

DRUGS (1)
  1. RITALIN [Suspect]
     Dosage: 15 MG, DAILY
     Route: 048

REACTIONS (1)
  - PETIT MAL EPILEPSY [None]
